FAERS Safety Report 6385943-4 (Version None)
Quarter: 2009Q4

REPORT INFORMATION
  Report Type: 
  Country: None (occurrence: None)
  Receive Date: 20091002
  Receipt Date: 20090421
  Transmission Date: 20100525
  Serious: No
  Sender: FDA-Public Use
  Company Number: US-ASTRAZENECA-2009UW04357

PATIENT
  Age: 966 Month
  Sex: Female
  Weight: 77.1 kg

DRUGS (1)
  1. ARIMIDEX [Suspect]
     Indication: BREAST CANCER
     Route: 048
     Dates: start: 20090210

REACTIONS (7)
  - ARTHRALGIA [None]
  - DYSURIA [None]
  - GAIT DISTURBANCE [None]
  - JOINT SWELLING [None]
  - MICTURITION URGENCY [None]
  - NAUSEA [None]
  - VOMITING [None]
